FAERS Safety Report 14143045 (Version 2)
Quarter: 2017Q4

REPORT INFORMATION
  Report Type: Spontaneous
  Country: US (occurrence: US)
  Receive Date: 20171030
  Receipt Date: 20171103
  Transmission Date: 20180321
  Serious: No
  Sender: FDA-Public Use
  Company Number: US-BAYER-2017-209111

PATIENT
  Age: 34 Year
  Weight: 72.56 kg

DRUGS (1)
  1. ALEVE [Suspect]
     Active Substance: NAPROXEN SODIUM
     Indication: MIGRAINE
     Dosage: UNK

REACTIONS (1)
  - Drug effective for unapproved indication [Unknown]
